FAERS Safety Report 13361846 (Version 1)
Quarter: 2017Q1

REPORT INFORMATION
  Report Type: Spontaneous
  Country: US (occurrence: US)
  Receive Date: 20170321
  Receipt Date: 20170321
  Transmission Date: 20170429
  Serious: Yes (Hospitalization)
  Sender: FDA-Public Use
  Company Number: None

PATIENT
  Age: 63 Year
  Sex: Female

DRUGS (13)
  1. PREDNISONE. [Concomitant]
     Active Substance: PREDNISONE
  2. VALTREX [Concomitant]
     Active Substance: VALACYCLOVIR HYDROCHLORIDE
  3. AMITRIPTYLIN [Concomitant]
     Active Substance: AMITRIPTYLINE
  4. DIAZEPAM. [Concomitant]
     Active Substance: DIAZEPAM
  5. MULTIPLE VIT [Concomitant]
  6. SYNTHROID [Concomitant]
     Active Substance: LEVOTHYROXINE SODIUM
  7. ESTROGAMTEST [Concomitant]
  8. NORCO [Concomitant]
     Active Substance: ACETAMINOPHEN\HYDROCODONE BITARTRATE
  9. LEXAPRO [Concomitant]
     Active Substance: ESCITALOPRAM OXALATE
  10. PROGESTERONE. [Concomitant]
     Active Substance: PROGESTERONE
  11. ENBREL [Suspect]
     Active Substance: ETANERCEPT
     Indication: RHEUMATOID ARTHRITIS
     Route: 058
     Dates: start: 20161101, end: 20170316
  12. SINGULAIR [Concomitant]
     Active Substance: MONTELUKAST SODIUM
  13. GABAPENTIN. [Concomitant]
     Active Substance: GABAPENTIN

REACTIONS (8)
  - Tinnitus [None]
  - Fall [None]
  - Visual impairment [None]
  - Joint lock [None]
  - Facial pain [None]
  - Abasia [None]
  - Dizziness postural [None]
  - Orthostatic hypotension [None]

NARRATIVE: CASE EVENT DATE: 20170310
